FAERS Safety Report 12641256 (Version 5)
Quarter: 2017Q1

REPORT INFORMATION
  Report Type: Spontaneous
  Country: US (occurrence: US)
  Receive Date: 20160810
  Receipt Date: 20170328
  Transmission Date: 20170428
  Serious: Yes (Hospitalization, Other)
  Sender: FDA-Public Use
  Company Number: US-PFIZER INC-2016361253

PATIENT
  Age: 65 Year
  Sex: Female

DRUGS (26)
  1. XELJANZ [Suspect]
     Active Substance: TOFACITINIB CITRATE
     Dosage: 5 MG, 2X/DAY
     Route: 048
     Dates: start: 20150618
  2. TRAZODONE HYDROCHLORIDE. [Concomitant]
     Active Substance: TRAZODONE HYDROCHLORIDE
     Dosage: 150 MG, 1X/DAY (3 TABLET 50MG TABLET AT BEDTIME)
  3. DICLOFENAC SODIUM. [Concomitant]
     Active Substance: DICLOFENAC SODIUM
     Indication: PAIN
     Dosage: 75 MG, DAILY
     Route: 048
     Dates: start: 20160630
  4. CALCIUM +VIT D [Concomitant]
     Active Substance: CALCIUM\VITAMIN D
     Dosage: 3600 UG, 2X/DAY
     Route: 048
  5. XELJANZ [Suspect]
     Active Substance: TOFACITINIB CITRATE
     Indication: RHEUMATOID ARTHRITIS
     Dosage: 5 MG, 2X/DAY
     Route: 048
     Dates: start: 20160325
  6. TYLENOL WITH CODEINE [Concomitant]
     Active Substance: ACETAMINOPHEN\CODEINE PHOSPHATE
     Dosage: 1 DF, 3X/DAY, (EVERY EIGHT HOURS) [CODEINE PHOSPHATE:60MG]/ [PARACETAMOL:300MG]
     Route: 048
     Dates: start: 20160630
  7. GABAPENTIN. [Concomitant]
     Active Substance: GABAPENTIN
     Dosage: 100 MG, 3X/DAY
  8. TESSALON [Concomitant]
     Active Substance: BENZONATATE
     Dosage: 200 MG, 2X/DAY (2 (ORAL) TWO TIMES DAILY)
     Route: 048
     Dates: start: 20160630
  9. LIDODERM [Concomitant]
     Active Substance: LIDOCAINE
     Dosage: 5% PATCH, 1 (EXTERNAL) 1-3 DAILY 12 HOURS ON 12 HOURS OFF)
     Route: 062
     Dates: start: 20140220
  10. NORCO [Concomitant]
     Active Substance: ACETAMINOPHEN\HYDROCODONE BITARTRATE
     Dosage: 1 DF, 4X/DAY, [HYDROCODONE BITARTRATE: 7.5 MG] [PARACETAMOL:325 MG]
     Route: 048
     Dates: start: 20160630
  11. DICLOFENAC SODIUM. [Concomitant]
     Active Substance: DICLOFENAC SODIUM
     Indication: INFLAMMATION
  12. AMANTADINE HCL [Concomitant]
     Active Substance: AMANTADINE HYDROCHLORIDE
     Indication: INFECTION
     Dosage: 100 MG, 2X/DAY
     Route: 048
     Dates: start: 20160630
  13. TRAZODONE HYDROCHLORIDE. [Concomitant]
     Active Substance: TRAZODONE HYDROCHLORIDE
     Dosage: 200 MG, 1X/DAY (4 (ORAL) AT BEDTIME)
     Route: 048
     Dates: start: 20160630
  14. METHOTREXATE. [Concomitant]
     Active Substance: METHOTREXATE
     Dosage: 22.5 MG, WEEKLY, (WEDNESDAYS)
     Route: 048
     Dates: start: 20160630
  15. WELLBUTRIN XL [Concomitant]
     Active Substance: BUPROPION HYDROCHLORIDE
     Dosage: 300 MG, DAILY
     Route: 048
     Dates: start: 20160630
  16. DITROPAN XL [Concomitant]
     Active Substance: OXYBUTYNIN CHLORIDE
     Dosage: 15 MG, DAILY
     Route: 048
     Dates: start: 20160630
  17. PRILOSEC [Concomitant]
     Active Substance: OMEPRAZOLE MAGNESIUM
     Dosage: 40 MG, 2X/DAY (2 CAPSULE DR 20MG )
     Dates: start: 20150805
  18. FOLIC ACID. [Concomitant]
     Active Substance: FOLIC ACID
     Dosage: 1 MG, DAILY, (INCREASE TO 4 WITH HER MOUTH SORES, USES OTC)
     Route: 048
     Dates: start: 20160630
  19. FOLIC ACID. [Concomitant]
     Active Substance: FOLIC ACID
     Dosage: 4 MG, 2X/DAY (5, 0.8MG CAPSULE )
  20. XYZAL [Concomitant]
     Active Substance: LEVOCETIRIZINE DIHYDROCHLORIDE
     Dosage: 5 MG, 1X/DAY, (AT BEDTIME)
     Route: 048
     Dates: start: 20160630
  21. SINGULAIR [Concomitant]
     Active Substance: MONTELUKAST SODIUM
     Dosage: 10 MG, DAILY
     Route: 048
     Dates: start: 20160630
  22. METOCLOPRAMIDE HCL [Concomitant]
     Active Substance: METOCLOPRAMIDE HYDROCHLORIDE
     Dosage: 5 MG, 1X/DAY, (DAILY, QHS)
     Route: 048
     Dates: start: 20160630
  23. METHOTREXATE. [Concomitant]
     Active Substance: METHOTREXATE
     Dosage: 20 MG, WEEKLY (8 TABLET 2.5MG TABLET ONCE A WEEK, WEDNESDAYS)
  24. ALLOPURINOL. [Concomitant]
     Active Substance: ALLOPURINOL
     Dosage: 300 MG, DAILY
     Route: 048
     Dates: start: 20160630
  25. PROLIA [Concomitant]
     Active Substance: DENOSUMAB
     Dosage: 1 ML, (1 CC, HH;EVERY 6 MONTHS)
     Route: 058
     Dates: start: 20150827
  26. SYNTHROID [Concomitant]
     Active Substance: LEVOTHYROXINE SODIUM
     Dosage: 150 UG, DAILY
     Route: 048
     Dates: start: 20160705

REACTIONS (9)
  - Head injury [Recovered/Resolved]
  - Hand fracture [Recovering/Resolving]
  - Fall [Recovering/Resolving]
  - Laceration [Recovered/Resolved]
  - Viral infection [Unknown]
  - Malaise [Recovered/Resolved]
  - Dizziness [Recovering/Resolving]
  - Renal impairment [Unknown]
  - Hypotension [Unknown]

NARRATIVE: CASE EVENT DATE: 2016
